FAERS Safety Report 8354385-4 (Version None)
Quarter: 2012Q2

REPORT INFORMATION
  Report Type: 
  Country: None (occurrence: None)
  Receive Date: 20120511
  Receipt Date: 20120509
  Transmission Date: 20120825
  Serious: Yes (Hospitalization)
  Sender: FDA-Public Use
  Company Number: 2012SP001325

PATIENT
  Age: 29 Year
  Sex: Male
  Weight: 94 kg

DRUGS (10)
  1. CLOZARIL [Concomitant]
     Dates: start: 20120501
  2. ATIVAN [Concomitant]
     Indication: INSOMNIA
     Dates: start: 20120401
  3. LATUDA [Suspect]
     Indication: SCHIZOAFFECTIVE DISORDER
     Route: 048
     Dates: start: 20120401, end: 20120503
  4. CLOZARIL [Concomitant]
     Indication: SCHIZOAFFECTIVE DISORDER
     Dates: start: 20100101, end: 20120314
  5. ATIVAN [Concomitant]
     Dates: start: 20120314, end: 20120322
  6. ZYPREXA [Concomitant]
     Indication: PRODUCT USED FOR UNKNOWN INDICATION
     Dates: start: 20120314, end: 20120322
  7. I.V. SOLUTIONS [Concomitant]
     Indication: DEHYDRATION
     Route: 042
     Dates: start: 20120321, end: 20120321
  8. HALDOL [Concomitant]
     Indication: PRODUCT USED FOR UNKNOWN INDICATION
     Dates: start: 20120314, end: 20120322
  9. CLOZARIL [Concomitant]
     Dates: start: 20120323, end: 20120501
  10. I.V. SOLUTIONS [Concomitant]
     Route: 042
     Dates: start: 20120322, end: 20120322

REACTIONS (1)
  - PARANOIA [None]
